FAERS Safety Report 10952214 (Version 1)
Quarter: 2015Q1

REPORT INFORMATION
  Report Type: Spontaneous
  Country: US (occurrence: None)
  Receive Date: 20150324
  Receipt Date: 20150324
  Transmission Date: 20150721
  Serious: No
  Sender: FDA-Public Use
  Company Number: None

PATIENT
  Age: 52 Year
  Sex: Female
  Weight: 108.86 kg

DRUGS (17)
  1. KLONIPIN [Concomitant]
     Active Substance: CLONAZEPAM
  2. CALCIUM [Concomitant]
     Active Substance: CALCIUM
  3. RED YEAST RICE [Concomitant]
     Active Substance: DIETARY SUPPLEMENT
  4. BOTOX [Suspect]
     Active Substance: ONABOTULINUMTOXINA
     Indication: MIGRAINE
     Dosage: INJ BY NURO 3 MOS GIVEN INTO/UNDER THE SKIN
     Route: 058
     Dates: start: 20141231
  5. AMITRIPTYLINE HCL [Concomitant]
     Active Substance: AMITRIPTYLINE
  6. BAYER MIGRAINE [Concomitant]
  7. GLUCOSAMINE + CHONDROITIN [Concomitant]
  8. XANAX [Concomitant]
     Active Substance: ALPRAZOLAM
  9. REQUIP [Concomitant]
     Active Substance: ROPINIROLE HYDROCHLORIDE
  10. COENZYME Q10 [Concomitant]
     Active Substance: UBIDECARENONE
  11. TRAMADOL [Concomitant]
     Active Substance: TRAMADOL
  12. VOLTAREN [Concomitant]
     Active Substance: DICLOFENAC SODIUM
  13. VITA D [Concomitant]
  14. SUMAVEL DOSE PRO [Concomitant]
  15. VITAMIN B12 [Concomitant]
     Active Substance: CYANOCOBALAMIN
  16. VITAMIN B COMPLEX [Concomitant]
     Active Substance: CYANOCOBALAMIN\DEXPANTHENOL\NIACINAMIDE\PYRIDOXINE HYDROCHLORIDE\RIBOFLAVIN 5^-PHOSPHATE SODIUM\THIAMINE HYDROCHLORIDE\VITAMIN B COMPLEX
  17. FLUSH FREE NIACIN [Concomitant]

REACTIONS (3)
  - Impaired driving ability [None]
  - Neck pain [None]
  - Musculoskeletal stiffness [None]

NARRATIVE: CASE EVENT DATE: 20141231
